FAERS Safety Report 9679258 (Version 2)
Quarter: 2014Q1

REPORT INFORMATION
  Report Type: Spontaneous
  Country: AU (occurrence: AU)
  Receive Date: 20131109
  Receipt Date: 20140128
  Transmission Date: 20141002
  Serious: Yes (Death)
  Sender: FDA-Public Use
  Company Number: AU-ROCHE-1301519

PATIENT
  Sex: Female

DRUGS (1)
  1. ACTILYSE [Suspect]
     Indication: CEREBRAL INFARCTION
     Route: 065
     Dates: start: 20121107

REACTIONS (1)
  - Death [Fatal]
